FAERS Safety Report 21232871 (Version 1)
Quarter: 2022Q3

REPORT INFORMATION
  Report Type: Spontaneous
  Country: US (occurrence: US)
  Receive Date: 20220819
  Receipt Date: 20220819
  Transmission Date: 20221027
  Serious: No
  Sender: FDA-Public Use
  Company Number: US-BAYER-2022A113873

PATIENT
  Age: 72 Year
  Sex: Female

DRUGS (1)
  1. KERENDIA [Suspect]
     Active Substance: FINERENONE
     Dosage: UNK
     Dates: start: 20220426, end: 20220517

REACTIONS (3)
  - Headache [None]
  - Lethargy [None]
  - Neck pain [None]

NARRATIVE: CASE EVENT DATE: 20220426
